FAERS Safety Report 24118106 (Version 1)
Quarter: 2024Q3

REPORT INFORMATION
  Report Type: Report from Study
  Country: US (occurrence: None)
  Receive Date: 20240722
  Receipt Date: 20240722
  Transmission Date: 20241016
  Serious: Yes (Other)
  Sender: ASTRAZENECA
  Company Number: 2020SF44990

PATIENT
  Sex: Female

DRUGS (1)
  1. LYNPARZA [Suspect]
     Active Substance: OLAPARIB
     Indication: Breast cancer female
     Dosage: 300 MG IN AM AND 150 MG IN PM
     Route: 048
     Dates: start: 20200904

REACTIONS (9)
  - Hepatitis [Unknown]
  - Tumour marker increased [Unknown]
  - Nausea [Recovering/Resolving]
  - Anaemia [Recovered/Resolved]
  - Fatigue [Not Recovered/Not Resolved]
  - Alopecia [Not Recovered/Not Resolved]
  - White blood cell count abnormal [Recovering/Resolving]
  - Rash pruritic [Unknown]
  - Product dose omission in error [Unknown]
